FAERS Safety Report 10054970 (Version 2)
Quarter: 2014Q2

REPORT INFORMATION
  Report Type: Spontaneous
  Country: US (occurrence: US)
  Receive Date: 20140402
  Receipt Date: 20140417
  Transmission Date: 20141212
  Serious: Yes (Hospitalization, Other)
  Sender: FDA-Public Use
  Company Number: US-RB-065170-14

PATIENT
  Age: 46 Year
  Sex: Female

DRUGS (10)
  1. BUPRENORPHINE/NALOXONE GENERIC [Suspect]
     Indication: DRUG DEPENDENCE
     Route: 060
     Dates: start: 201312, end: 201401
  2. BUPRENORPHINE/NALOXONE GENERIC [Suspect]
     Route: 060
     Dates: start: 201401, end: 20140215
  3. LAMICTAL [Concomitant]
     Indication: BIPOLAR DISORDER
     Route: 048
     Dates: start: 20140125
  4. LATUDA [Concomitant]
     Indication: BIPOLAR DISORDER
     Route: 048
     Dates: start: 2012, end: 20140124
  5. POTASSIUM [Concomitant]
     Indication: HYPOKALAEMIA
     Route: 048
     Dates: start: 2011, end: 20140407
  6. LASIX [Concomitant]
     Indication: OEDEMA PERIPHERAL
     Route: 048
     Dates: start: 2011, end: 20140407
  7. ATARAX [Concomitant]
     Indication: ANXIETY
     Dosage: DOSING DETAILS UNKNOWN
     Route: 048
  8. ATARAX [Concomitant]
     Indication: PANIC ATTACK
     Dosage: DOSING DETAILS UNKNOWN
     Route: 048
  9. ATARAX [Concomitant]
     Indication: ANXIETY
     Dosage: DOSING DETAILS UNKNOWN
     Route: 048
  10. CLONIDINE [Concomitant]
     Indication: HYPERTENSION
     Dosage: DOSING DETAILS UNKNOWN; DAILY USE
     Route: 048

REACTIONS (13)
  - Paranoia [Not Recovered/Not Resolved]
  - Psychotic disorder [Recovered/Resolved]
  - Dyspnoea [Recovered/Resolved]
  - Palpitations [Recovered/Resolved]
  - Asthma [Recovered/Resolved]
  - Restlessness [Not Recovered/Not Resolved]
  - Panic attack [Not Recovered/Not Resolved]
  - Condition aggravated [Not Recovered/Not Resolved]
  - Abdominal pain upper [Recovered/Resolved]
  - Anxiety [Not Recovered/Not Resolved]
  - Insomnia [Recovering/Resolving]
  - Bronchitis [Unknown]
  - Inflammation [Unknown]
